FAERS Safety Report 7712976-5 (Version None)
Quarter: 2011Q3

REPORT INFORMATION
  Report Type: 
  Country: None (occurrence: None)
  Receive Date: 20110826
  Receipt Date: 20110824
  Transmission Date: 20111222
  Serious: Yes (Hospitalization, Other)
  Sender: FDA-Public Use
  Company Number: DE-ABBOTT-11P-062-0715166-00

PATIENT
  Sex: Female
  Weight: 58 kg

DRUGS (3)
  1. HUMIRA [Suspect]
     Indication: CROHN'S DISEASE
     Route: 058
     Dates: start: 20101009, end: 20110321
  2. HUMIRA [Suspect]
     Dates: end: 20110715
  3. HUMIRA [Suspect]

REACTIONS (3)
  - INFLAMMATORY MARKER INCREASED [None]
  - PERIRECTAL ABSCESS [None]
  - RENAL DISORDER [None]
